FAERS Safety Report 24149724 (Version 1)
Quarter: 2024Q3

REPORT INFORMATION
  Report Type: Spontaneous
  Country: US (occurrence: US)
  Receive Date: 20240730
  Receipt Date: 20240730
  Transmission Date: 20241016
  Serious: Yes (Hospitalization)
  Sender: NOVO NORDISK
  Company Number: US-NOVOPROD-1259715

PATIENT
  Age: 53 Year

DRUGS (1)
  1. OZEMPIC [Suspect]
     Active Substance: SEMAGLUTIDE
     Indication: Product used for unknown indication
     Dosage: UNK
     Route: 058
     Dates: start: 202210, end: 202306

REACTIONS (4)
  - Ileus [Unknown]
  - Impaired gastric emptying [Unknown]
  - Intestinal obstruction [Unknown]
  - Diarrhoea [Unknown]
